FAERS Safety Report 9282923 (Version 2)
Quarter: 2013Q2

REPORT INFORMATION
  Report Type: Spontaneous
  Country: ES (occurrence: ES)
  Receive Date: 20130510
  Receipt Date: 20130522
  Transmission Date: 20140414
  Serious: Yes (Hospitalization, Disabling)
  Sender: FDA-Public Use
  Company Number: ES-ROCHE-1222364

PATIENT
  Age: 56 Year
  Sex: Female
  Weight: 54.5 kg

DRUGS (8)
  1. PEGASYS [Suspect]
     Indication: HEPATITIS C
     Route: 065
     Dates: start: 20120126, end: 20120808
  2. PEGASYS [Suspect]
     Route: 065
     Dates: start: 20120808, end: 20120920
  3. COPEGUS [Suspect]
     Indication: HEPATITIS C
     Dosage: 600 MG IN MORNING AND 400 MG IN EVENING
     Route: 065
     Dates: start: 20120126, end: 20120229
  4. COPEGUS [Suspect]
     Dosage: 200 MG IN MORNING AND 400 MG IN EVENING
     Route: 065
     Dates: start: 20120229, end: 20120308
  5. COPEGUS [Suspect]
     Route: 065
     Dates: start: 20120308, end: 20120409
  6. COPEGUS [Suspect]
     Dosage: 200 MG IN MORNING AND 400 MG IN EVENING
     Route: 065
     Dates: start: 20120409, end: 20120522
  7. COPEGUS [Suspect]
     Dosage: 200 MG IN MORNING AND 400 MG IN EVENING
     Route: 065
     Dates: start: 20120525, end: 20120920
  8. VICTRELIS [Suspect]
     Indication: HEPATITIS C
     Route: 048
     Dates: start: 20120229, end: 20120920

REACTIONS (37)
  - Polymyositis [Recovering/Resolving]
  - Chest pain [Recovered/Resolved]
  - Blindness transient [Recovered/Resolved]
  - Asthenia [Recovering/Resolving]
  - Pyrexia [Recovered/Resolved]
  - Eye irritation [Recovered/Resolved]
  - Nasopharyngitis [Recovered/Resolved]
  - Dyspnoea exertional [Recovered/Resolved]
  - Irritability [Recovered/Resolved]
  - Abdominal discomfort [Recovered/Resolved]
  - Haemoglobin decreased [Recovering/Resolving]
  - Pyrexia [Recovered/Resolved]
  - Oral disorder [Recovered/Resolved]
  - Rash macular [Recovered/Resolved]
  - Dysgeusia [Recovered/Resolved]
  - Abdominal pain upper [Recovered/Resolved]
  - Diarrhoea [Recovered/Resolved]
  - Weight decreased [Recovering/Resolving]
  - Nervousness [Recovered/Resolved]
  - Hyperhidrosis [Recovered/Resolved]
  - Neutrophil count decreased [Recovering/Resolving]
  - Platelet count decreased [Recovering/Resolving]
  - Nausea [Recovered/Resolved]
  - Vomiting [Recovered/Resolved]
  - Toxic skin eruption [Recovered/Resolved]
  - Seborrhoeic keratosis [Recovered/Resolved]
  - Conjunctivitis [Recovered/Resolved]
  - Alopecia [Recovered/Resolved]
  - Lymphadenopathy [Unknown]
  - Lymphadenopathy [Unknown]
  - Hepatomegaly [Unknown]
  - Diverticulum [Unknown]
  - Oesophageal hypomotility [Unknown]
  - Spinal muscular atrophy [Unknown]
  - Blood immunoglobulin G increased [Unknown]
  - Iron deficiency anaemia [Unknown]
  - Osteoporosis [Unknown]
